FAERS Safety Report 8081703-7 (Version None)
Quarter: 2012Q1

REPORT INFORMATION
  Report Type: 
  Country: None (occurrence: None)
  Receive Date: 20120130
  Receipt Date: 20120115
  Transmission Date: 20120608
  Serious: Yes (Other)
  Sender: FDA-Public Use
  Company Number: TR-BAUSCH-2012BL000332

PATIENT
  Age: 4 Year
  Sex: Male

DRUGS (1)
  1. CYCLOPENTOLATE HCL [Suspect]
     Indication: OPHTHALMOLOGICAL EXAMINATION
     Route: 047

REACTIONS (4)
  - DYSARTHRIA [None]
  - DISORIENTATION [None]
  - ABASIA [None]
  - BALANCE DISORDER [None]
